FAERS Safety Report 5354259-7 (Version None)
Quarter: 2007Q2

REPORT INFORMATION
  Report Type: 
  Country: None (occurrence: None)
  Receive Date: 20070612
  Receipt Date: 20070604
  Transmission Date: 20071010
  Serious: Yes (Other)
  Sender: FDA-Public Use
  Company Number: CA-ABBOTT-07P-028-0370472-00

PATIENT
  Sex: Female
  Weight: 60 kg

DRUGS (1)
  1. MAVIK [Suspect]
     Indication: HYPERTENSION
     Route: 048
     Dates: start: 20061101

REACTIONS (1)
  - RADIUS FRACTURE [None]
